FAERS Safety Report 24927946 (Version 2)
Quarter: 2025Q1

REPORT INFORMATION
  Report Type: Spontaneous
  Country: US (occurrence: US)
  Receive Date: 20250205
  Receipt Date: 20250210
  Transmission Date: 20250409
  Serious: Yes (Hospitalization)
  Sender: PFIZER
  Company Number: US-MLMSERVICE-20250123-PI372359-00273-1

PATIENT
  Age: 1 Decade
  Sex: Male
  Weight: 21.2 kg

DRUGS (21)
  1. PROPOFOL [Suspect]
     Active Substance: PROPOFOL
     Indication: General anaesthesia
     Route: 042
  2. PROPOFOL [Suspect]
     Active Substance: PROPOFOL
     Route: 042
  3. PROPOFOL [Suspect]
     Active Substance: PROPOFOL
     Route: 042
  4. PROPOFOL [Suspect]
     Active Substance: PROPOFOL
     Route: 042
  5. PROPOFOL [Suspect]
     Active Substance: PROPOFOL
     Route: 042
  6. PROPOFOL [Suspect]
     Active Substance: PROPOFOL
     Route: 042
  7. PROPOFOL [Suspect]
     Active Substance: PROPOFOL
     Route: 042
  8. PROPOFOL [Suspect]
     Active Substance: PROPOFOL
     Route: 042
  9. PROPOFOL [Suspect]
     Active Substance: PROPOFOL
     Route: 042
  10. PROPOFOL [Suspect]
     Active Substance: PROPOFOL
     Route: 042
  11. MIDAZOLAM [Concomitant]
     Active Substance: MIDAZOLAM
     Indication: Premedication
     Route: 048
  12. MIDAZOLAM [Concomitant]
     Active Substance: MIDAZOLAM
     Route: 048
  13. MIDAZOLAM [Concomitant]
     Active Substance: MIDAZOLAM
     Route: 048
  14. MIDAZOLAM [Concomitant]
     Active Substance: MIDAZOLAM
     Route: 048
  15. MIDAZOLAM [Concomitant]
     Active Substance: MIDAZOLAM
     Route: 048
  16. MIDAZOLAM [Concomitant]
     Active Substance: MIDAZOLAM
     Route: 048
  17. MIDAZOLAM [Concomitant]
     Active Substance: MIDAZOLAM
     Route: 048
  18. MIDAZOLAM [Concomitant]
     Active Substance: MIDAZOLAM
     Route: 048
  19. MIDAZOLAM [Concomitant]
     Active Substance: MIDAZOLAM
     Route: 048
  20. LEVETIRACETAM [Concomitant]
     Active Substance: LEVETIRACETAM
     Indication: Epilepsy
  21. SEVOFLURANE [Concomitant]
     Active Substance: SEVOFLURANE

REACTIONS (2)
  - Delayed recovery from anaesthesia [Recovered/Resolved]
  - Hypotension [Recovered/Resolved]
